FAERS Safety Report 6072443-4 (Version None)
Quarter: 2009Q1

REPORT INFORMATION
  Report Type: 
  Country: None (occurrence: None)
  Receive Date: 20090210
  Receipt Date: 20090205
  Transmission Date: 20090719
  Serious: Yes (Hospitalization)
  Sender: FDA-Public Use
  Company Number: FR-BRISTOL-MYERS SQUIBB COMPANY-14496210

PATIENT
  Age: 79 Year
  Sex: Male

DRUGS (3)
  1. AMIKACIN SULFATE [Suspect]
     Indication: SEPTIC SHOCK
     Dates: start: 20081110, end: 20081114
  2. AZACTAM [Suspect]
     Indication: SEPTIC SHOCK
     Dosage: AZACTAM 1G
     Dates: start: 20081110, end: 20081114
  3. DALACINE [Suspect]
     Indication: SEPTIC SHOCK
     Dates: start: 20081030, end: 20081114

REACTIONS (2)
  - DERMATITIS EXFOLIATIVE [None]
  - VASCULAR PURPURA [None]
